FAERS Safety Report 13811353 (Version 1)
Quarter: 2017Q3

REPORT INFORMATION
  Report Type: Spontaneous
  Country: US (occurrence: US)
  Receive Date: 20170728
  Receipt Date: 20170728
  Transmission Date: 20171127
  Serious: No
  Sender: FDA-Public Use
  Company Number: US-ROCHE-1003066

PATIENT
  Sex: Female

DRUGS (7)
  1. BONIVA [Suspect]
     Active Substance: IBANDRONATE SODIUM
     Indication: PRODUCT USED FOR UNKNOWN INDICATION
     Route: 065
  2. VITAMIN D [Concomitant]
     Active Substance: CHOLECALCIFEROL
     Indication: OSTEOPOROSIS
     Route: 048
  3. ASPIRIN. [Concomitant]
     Active Substance: ASPIRIN
     Route: 048
  4. LIPITOR [Suspect]
     Active Substance: ATORVASTATIN CALCIUM
     Indication: BLOOD CHOLESTEROL INCREASED
     Route: 048
  5. PRESERVISION AREDS [Concomitant]
     Active Substance: MINERALS\VITAMINS
     Indication: MACULAR DEGENERATION
     Route: 048
  6. CALTRATE [Concomitant]
     Active Substance: CALCIUM CARBONATE
     Indication: OSTEOPOROSIS
     Route: 048
  7. FISH OIL [Concomitant]
     Active Substance: FISH OIL
     Route: 065

REACTIONS (5)
  - Back pain [Unknown]
  - Pain in extremity [Unknown]
  - Neck pain [Unknown]
  - Blood pressure decreased [Unknown]
  - Muscle spasms [Unknown]
